FAERS Safety Report 7769732-1 (Version None)
Quarter: 2011Q3

REPORT INFORMATION
  Report Type: 
  Country: None (occurrence: None)
  Receive Date: 20110922
  Receipt Date: 20100817
  Transmission Date: 20111222
  Serious: No
  Sender: FDA-Public Use
  Company Number: US-ASTRAZENECA-2010SE38780

PATIENT
  Sex: Male

DRUGS (3)
  1. DEPAKOTE [Concomitant]
  2. SEROQUEL [Suspect]
     Indication: AFFECTIVE DISORDER
     Route: 048
  3. SEROQUEL [Suspect]
     Indication: MENTAL RETARDATION
     Route: 048

REACTIONS (2)
  - HEPATIC ENZYME INCREASED [None]
  - AGITATION [None]
